FAERS Safety Report 16474106 (Version 2)
Quarter: 2019Q3

REPORT INFORMATION
  Report Type: Spontaneous
  Country: US (occurrence: US)
  Receive Date: 20190625
  Receipt Date: 20190805
  Transmission Date: 20191004
  Serious: No
  Sender: FDA-Public Use
  Company Number: US-PFIZER INC-2019271288

PATIENT
  Sex: Female

DRUGS (2)
  1. GABAPENTIN. [Suspect]
     Active Substance: GABAPENTIN
     Dosage: UNK UNK, 2X/DAY (WAS NOT SURE IF IT WAS 50 MG OR 200 MG AND TOOK IT MAY BE LIKE 2 TIMES A DAY)
  2. GABAPENTIN. [Suspect]
     Active Substance: GABAPENTIN
     Dosage: UNK (DOCTOR TOLD HER TO DOUBLE IT UP)

REACTIONS (1)
  - Drug ineffective [Unknown]
